FAERS Safety Report 15936626 (Version 2)
Quarter: 2019Q1

REPORT INFORMATION
  Report Type: Spontaneous
  Country: JP (occurrence: JP)
  Receive Date: 20190208
  Receipt Date: 20190215
  Transmission Date: 20190417
  Serious: Yes (Other)
  Sender: FDA-Public Use
  Company Number: JP-SA-2019SA031995

PATIENT
  Age: 58 Year
  Sex: Female

DRUGS (3)
  1. CYCLOSPORIN A [Suspect]
     Active Substance: CYCLOSPORINE
     Indication: APLASTIC ANAEMIA
     Dosage: UNK
     Route: 048
  2. ANTI-THYMOCYTE GLOBULIN (RABBIT) NOS [Suspect]
     Active Substance: LAPINE T-LYMPHOCYTE IMMUNE GLOBULIN
     Indication: APLASTIC ANAEMIA
     Dosage: UNK
  3. METHYLPREDNISOLONE. [Suspect]
     Active Substance: METHYLPREDNISOLONE
     Indication: APLASTIC ANAEMIA
     Dosage: UNK

REACTIONS (5)
  - Reversible cerebral vasoconstriction syndrome [Recovered/Resolved]
  - Visual field defect [Recovered/Resolved]
  - Hypertension [Recovered/Resolved]
  - Thunderclap headache [Recovered/Resolved]
  - Cerebral infarction [Recovered/Resolved]
